FAERS Safety Report 23380791 (Version 2)
Quarter: 2024Q1

REPORT INFORMATION
  Report Type: Spontaneous
  Country: US (occurrence: US)
  Receive Date: 20240109
  Receipt Date: 20240301
  Transmission Date: 20240410
  Serious: Yes (Other)
  Sender: FDA-Public Use
  Company Number: US-TEVA-VS-3136221

PATIENT
  Age: 71 Year
  Sex: Female

DRUGS (5)
  1. PACLITAXEL [Suspect]
     Active Substance: PACLITAXEL
     Indication: Breast cancer female
     Dosage: CYCLICAL PACLITAXEL THERAPY EVERY 21 DAYS
     Route: 065
  2. DOXORUBICIN [Concomitant]
     Active Substance: DOXORUBICIN
     Indication: Breast cancer female
     Dosage: CYCLICAL DOXORUBICIN THERAPY EVERY 21 DAYS
     Route: 065
  3. CARBOPLATIN [Suspect]
     Active Substance: CARBOPLATIN
     Indication: Breast cancer female
     Dosage: CYCLICAL CARBOPLATIN THERAPY EVERY 21 DAYS
     Route: 065
  4. CYCLOPHOSPHAMIDE [Concomitant]
     Active Substance: CYCLOPHOSPHAMIDE
     Indication: Breast cancer female
     Dosage: CYCLICAL CYCLOPHOSPHAMIDE THERAPY EVERY 21 DAYS
     Route: 065
  5. PEMBROLIZUMAB [Suspect]
     Active Substance: PEMBROLIZUMAB
     Indication: Breast cancer female
     Dosage: CYCLICAL PEMBROLIZUMAB THERAPY EVERY 21 DAYS
     Route: 065

REACTIONS (3)
  - Neuropathy peripheral [Unknown]
  - Sjogren^s syndrome [Unknown]
  - Fatigue [Unknown]
